FAERS Safety Report 14362272 (Version 1)
Quarter: 2018Q1

REPORT INFORMATION
  Report Type: Spontaneous
  Country: US (occurrence: US)
  Receive Date: 20180108
  Receipt Date: 20180108
  Transmission Date: 20180509
  Serious: No
  Sender: FDA-Public Use
  Company Number: US-TEVA-2018-US-844673

PATIENT
  Age: 73 Year
  Sex: Female

DRUGS (1)
  1. CINQAIR [Suspect]
     Active Substance: RESLIZUMAB
     Route: 058

REACTIONS (2)
  - Vulvovaginal mycotic infection [Unknown]
  - Pain in extremity [Unknown]
